FAERS Safety Report 18775922 (Version 6)
Quarter: 2022Q3

REPORT INFORMATION
  Report Type: Report from Study
  Country: US (occurrence: US)
  Receive Date: 20210122
  Receipt Date: 20220824
  Transmission Date: 20221027
  Serious: Yes (Other)
  Sender: FDA-Public Use
  Company Number: US-TAKEDA-US202032623

PATIENT
  Age: 67 Year
  Sex: Female

DRUGS (3)
  1. HUMAN IMMUNOGLOBULIN G [Suspect]
     Active Substance: HUMAN IMMUNOGLOBULIN G
     Indication: Primary immunodeficiency syndrome
     Dosage: 30 GRAM, Q4WEEKS
     Route: 065
  2. HUMAN IMMUNOGLOBULIN G [Suspect]
     Active Substance: HUMAN IMMUNOGLOBULIN G
     Indication: Selective IgG subclass deficiency
  3. PANZYGA [Concomitant]
     Active Substance: HUMAN IMMUNOGLOBULIN G
     Route: 065

REACTIONS (20)
  - Neoplasm malignant [Unknown]
  - Plasma cell myeloma [Unknown]
  - Nephrolithiasis [Unknown]
  - Intracranial lipoma [Unknown]
  - Intracranial aneurysm [Unknown]
  - Anaphylactic reaction [Unknown]
  - Blood immunoglobulin A increased [Unknown]
  - COVID-19 [Unknown]
  - Dysphagia [Unknown]
  - Breast mass [Unknown]
  - Poor venous access [Unknown]
  - Pituitary tumour benign [Unknown]
  - Osteoporosis [Unknown]
  - Vaginal haemorrhage [Unknown]
  - Skin lesion [Unknown]
  - Illness [Unknown]
  - Post procedural complication [Unknown]
  - Back pain [Unknown]
  - Malaise [Unknown]
  - Fatigue [Unknown]

NARRATIVE: CASE EVENT DATE: 20200111
